FAERS Safety Report 4692299-1 (Version None)
Quarter: 2005Q2

REPORT INFORMATION
  Report Type: 
  Country: None (occurrence: None)
  Receive Date: 20050616
  Receipt Date: 20050526
  Transmission Date: 20051028
  Serious: Yes (Disabling)
  Sender: FDA-Public Use
  Company Number: CA_050508191

PATIENT
  Age: 78 Year
  Sex: Male

DRUGS (1)
  1. CIALIS [Suspect]
     Indication: ERECTILE DYSFUNCTION
     Dosage: 20 MG AS NEEDED
     Dates: start: 20041101

REACTIONS (4)
  - CATARACT NUCLEAR [None]
  - CHOROIDAL NEOVASCULARISATION [None]
  - DETACHMENT OF RETINAL PIGMENT EPITHELIUM [None]
  - MACULAR DEGENERATION [None]
